FAERS Safety Report 23466970 (Version 4)
Quarter: 2024Q4

REPORT INFORMATION
  Report Type: Spontaneous
  Country: US (occurrence: US)
  Receive Date: 20240201
  Receipt Date: 20241231
  Transmission Date: 20250115
  Serious: No
  Sender: BRISTOL-MYERS SQUIBB COMPANY
  Company Number: US-BRISTOL-MYERS SQUIBB COMPANY-2024-016995

PATIENT
  Age: 75 Year
  Sex: Female
  Weight: 76.66 kg

DRUGS (2)
  1. REVLIMID [Suspect]
     Active Substance: LENALIDOMIDE
     Indication: Plasma cell myeloma
     Route: 048
     Dates: start: 20231201
  2. REVLIMID [Suspect]
     Active Substance: LENALIDOMIDE
     Dosage: DOSE: 2 WEEKS ON 1 WEEK OFF
     Route: 048

REACTIONS (5)
  - Fatigue [Unknown]
  - Off label use [Unknown]
  - Joint swelling [Not Recovered/Not Resolved]
  - Hypersomnia [Unknown]
  - Decreased appetite [Unknown]
